FAERS Safety Report 25180521 (Version 1)
Quarter: 2025Q2

REPORT INFORMATION
  Report Type: Spontaneous
  Country: AU (occurrence: AU)
  Receive Date: 20250409
  Receipt Date: 20250409
  Transmission Date: 20250717
  Serious: Yes (Other)
  Sender: MYLAN
  Company Number: AU-MYLANLABS-2025M1028235

PATIENT
  Age: 45 Year
  Sex: Male

DRUGS (2)
  1. KALMA (ALPRAZOLAM) [Suspect]
     Active Substance: ALPRAZOLAM
     Indication: Insomnia
  2. KALMA (ALPRAZOLAM) [Suspect]
     Active Substance: ALPRAZOLAM
     Dosage: 9 MILLIGRAM, QD (9 MG A DAY OVER 24-HOUR PERIOD)
     Dates: start: 20240504

REACTIONS (7)
  - Road traffic accident [Unknown]
  - Brain injury [Unknown]
  - Pain [Not Recovered/Not Resolved]
  - Mental disorder [Unknown]
  - Incorrect product administration duration [Unknown]
  - Off label use [Unknown]
  - Overdose [Unknown]

NARRATIVE: CASE EVENT DATE: 20240504
